FAERS Safety Report 5556908-7 (Version None)
Quarter: 2007Q4

REPORT INFORMATION
  Report Type: 
  Country: None (occurrence: None)
  Receive Date: 20071214
  Receipt Date: 20071205
  Transmission Date: 20080405
  Serious: Yes (Other)
  Sender: FDA-Public Use
  Company Number: PHRM2007FR02754

PATIENT
  Age: 4 Year
  Sex: Male

DRUGS (2)
  1. FLIXOTIDE [Concomitant]
     Indication: ASTHMA
     Dosage: 50 UG, BID
  2. ZADITEN [Suspect]
     Indication: ASTHMA
     Dosage: 1 MG, QD
     Route: 048
     Dates: end: 20071205

REACTIONS (3)
  - COUGH [None]
  - PHARYNGEAL OEDEMA [None]
  - VOMITING [None]
